FAERS Safety Report 25885197 (Version 1)
Quarter: 2025Q4

REPORT INFORMATION
  Report Type: Spontaneous
  Country: US (occurrence: None)
  Receive Date: 20251003
  Receipt Date: 20251003
  Transmission Date: 20260117
  Serious: No
  Sender: FDA-CTU
  Company Number: None

PATIENT
  Age: 54 Year
  Sex: Female

DRUGS (2)
  1. MYCOPHENOLATE MOFETIL [Suspect]
     Active Substance: MYCOPHENOLATE MOFETIL
     Indication: Dermatomyositis
     Dosage: FREQUENCY : TWICE A DAY;?
     Route: 048
     Dates: start: 20250608
  2. AZATHIOPRINE [Suspect]
     Active Substance: AZATHIOPRINE

REACTIONS (3)
  - Diarrhoea [None]
  - Abdominal pain [None]
  - Therapy cessation [None]

NARRATIVE: CASE EVENT DATE: 20250903
